APPROVED DRUG PRODUCT: HYCODAN
Active Ingredient: HOMATROPINE METHYLBROMIDE; HYDROCODONE BITARTRATE
Strength: 1.5MG;5MG **Federal Register determination that product was not discontinued or withdrawn for safety or effectiveness reasons**
Dosage Form/Route: TABLET;ORAL
Application: N005213 | Product #001 | TE Code: AA
Applicant: GENUS LIFESCIENCES INC
Approved: Jul 26, 1988 | RLD: Yes | RS: No | Type: RX